FAERS Safety Report 22123647 (Version 4)
Quarter: 2023Q4

REPORT INFORMATION
  Report Type: Report from Study
  Country: CO (occurrence: CO)
  Receive Date: 20230322
  Receipt Date: 20231017
  Transmission Date: 20240110
  Serious: Yes (Other)
  Sender: FDA-Public Use
  Company Number: CO-002147023-NVSC2023CO063246

PATIENT
  Sex: Female

DRUGS (4)
  1. ELTROMBOPAG OLAMINE [Suspect]
     Active Substance: ELTROMBOPAG OLAMINE
     Indication: Immune thrombocytopenia
     Dosage: 25 MG, QD
     Route: 048
  2. ELTROMBOPAG OLAMINE [Suspect]
     Active Substance: ELTROMBOPAG OLAMINE
     Dosage: UNK
     Route: 065
     Dates: start: 202208, end: 20230927
  3. INSULIN NOS [Concomitant]
     Active Substance: INSULIN NOS
     Indication: Product used for unknown indication
     Dosage: UNK (2 YEARS AGO)
     Route: 058
  4. SEMAGLUTIDE [Concomitant]
     Active Substance: SEMAGLUTIDE
     Indication: Product used for unknown indication
     Dosage: UNK (2 CM, EACH WEEK)
     Route: 065

REACTIONS (7)
  - Haemorrhage [Unknown]
  - Platelet count decreased [Unknown]
  - Petechiae [Unknown]
  - Inappropriate schedule of product administration [Unknown]
  - Skin plaque [Not Recovered/Not Resolved]
  - Contusion [Not Recovered/Not Resolved]
  - Mental fatigue [Not Recovered/Not Resolved]
